FAERS Safety Report 16364224 (Version 1)
Quarter: 2019Q2

REPORT INFORMATION
  Report Type: Spontaneous
  Country: CO (occurrence: CO)
  Receive Date: 20190528
  Receipt Date: 20190528
  Transmission Date: 20190711
  Serious: Yes (Other)
  Sender: FDA-Public Use
  Company Number: CO-009507513-1905COL010635

PATIENT
  Age: 74 Year
  Sex: Male
  Weight: 47 kg

DRUGS (2)
  1. JANUMET [Suspect]
     Active Substance: METFORMIN HYDROCHLORIDE\SITAGLIPTIN PHOSPHATE
     Indication: DIABETES MELLITUS
     Dosage: 50/850 MG, DAILY
     Route: 048
     Dates: start: 20180520
  2. LANTUS [Concomitant]
     Active Substance: INSULIN GLARGINE
     Indication: DIABETES MELLITUS
     Dosage: 100 UL/ML, EVERY 12 HOURS
     Route: 058
     Dates: start: 20180508

REACTIONS (1)
  - Lung neoplasm malignant [Unknown]
